FAERS Safety Report 11930072 (Version 1)
Quarter: 2016Q1

REPORT INFORMATION
  Report Type: Spontaneous
  Country: US (occurrence: None)
  Receive Date: 20160119
  Receipt Date: 20160119
  Transmission Date: 20160526
  Serious: Yes (Death)
  Sender: FDA-Public Use
  Company Number: None

PATIENT
  Age: 65 Year
  Sex: Female

DRUGS (9)
  1. CALCIUM/D3 [Suspect]
     Active Substance: CALCIUM\CHOLECALCIFEROL
  2. AMBEIN [Concomitant]
  3. VITAMIN D3 [Concomitant]
     Active Substance: CHOLECALCIFEROL
  4. CETIRIZINE [Concomitant]
     Active Substance: CETIRIZINE HYDROCHLORIDE
  5. DICLOFENAC [Concomitant]
     Active Substance: DICLOFENAC
  6. IBRANCE [Suspect]
     Active Substance: PALBOCICLIB
     Indication: BREAST CANCER
     Dosage: DAILY FOR 21 DAYS
     Route: 048
     Dates: start: 20150521, end: 20151231
  7. BUPROPION. [Concomitant]
     Active Substance: BUPROPION
  8. FLOVENT [Concomitant]
     Active Substance: FLUTICASONE PROPIONATE
  9. ATENOLOL. [Concomitant]
     Active Substance: ATENOLOL

REACTIONS (1)
  - Death [None]

NARRATIVE: CASE EVENT DATE: 20151231
